FAERS Safety Report 23128046 (Version 1)
Quarter: 2023Q4

REPORT INFORMATION
  Report Type: Spontaneous
  Country: RS (occurrence: None)
  Receive Date: 20231031
  Receipt Date: 20231031
  Transmission Date: 20240110
  Serious: Yes (Other)
  Sender: FDA-Public Use
  Company Number: RS-INFO-000904

PATIENT
  Age: 48 Year
  Sex: Female

DRUGS (6)
  1. METRONIDAZOLE [Suspect]
     Active Substance: METRONIDAZOLE
     Indication: Enterocolitis
  2. LEVOFLOXACIN [Suspect]
     Active Substance: LEVOFLOXACIN
     Indication: Urinary tract infection
     Route: 040
  3. CALCIUM CARBONATE [Concomitant]
     Active Substance: CALCIUM CARBONATE
  4. CARVEDILOL [Concomitant]
     Active Substance: CARVEDILOL
  5. RANITIDINE [Concomitant]
     Active Substance: RANITIDINE
  6. SACCHAROMYCES CEREVISIAE [Concomitant]
     Active Substance: SACCHAROMYCES CEREVISIAE

REACTIONS (3)
  - Psychotic disorder [Recovered/Resolved]
  - Overdose [Unknown]
  - Drug interaction [Recovered/Resolved]
